FAERS Safety Report 8868787 (Version 2)
Quarter: 2012Q4

REPORT INFORMATION
  Report Type: 
  Country: US (occurrence: US)
  Receive Date: 20121024
  Receipt Date: 20121106
  Transmission Date: 20130627
  Serious: No
  Sender: FDA-Public Use
  Company Number: US-ASTRAZENECA-2012SE79403

PATIENT
  Age: 30 Year
  Sex: Female

DRUGS (2)
  1. NEXIUM [Suspect]
     Route: 048
  2. UNSPECIFIED INGREDIENT [Interacting]
     Route: 065

REACTIONS (4)
  - Drug interaction [Unknown]
  - Barrett^s oesophagus [Unknown]
  - Dyspepsia [Unknown]
  - Drug dose omission [Unknown]
